FAERS Safety Report 11267865 (Version 1)
Quarter: 2015Q3

REPORT INFORMATION
  Report Type: Spontaneous
  Country: US (occurrence: US)
  Receive Date: 20150713
  Receipt Date: 20150713
  Transmission Date: 20151125
  Serious: No
  Sender: FDA-Public Use
  Company Number: US-TAKEDA-2014MPI000356

PATIENT
  Age: 58 Year
  Sex: Female
  Weight: 65.18 kg

DRUGS (4)
  1. ROCEPHIN [Concomitant]
     Active Substance: CEFTRIAXONE SODIUM
     Route: 042
  2. CYTOXAN [Concomitant]
     Active Substance: CYCLOPHOSPHAMIDE
     Route: 042
  3. VELCADE [Suspect]
     Active Substance: BORTEZOMIB
     Indication: PLASMA CELL MYELOMA
     Dosage: 1.5 MG, ON DAYS 1, 8, 15, 22 OF EVERY 28 DAYS CYCLE
     Route: 058
     Dates: start: 201312
  4. AREDIA [Concomitant]
     Active Substance: PAMIDRONATE DISODIUM
     Route: 042

REACTIONS (6)
  - Aspartate aminotransferase increased [Unknown]
  - Blood urea increased [Unknown]
  - Blood creatinine increased [Unknown]
  - Haematocrit decreased [Unknown]
  - Alanine aminotransferase increased [Unknown]
  - Haemoglobin decreased [Unknown]

NARRATIVE: CASE EVENT DATE: 20140111
